FAERS Safety Report 10333557 (Version 1)
Quarter: 2014Q3

REPORT INFORMATION
  Report Type: Other
  Country: GB (occurrence: GB)
  Receive Date: 20140722
  Receipt Date: 20140722
  Transmission Date: 20150326
  Serious: Yes (Life-Threatening)
  Sender: FDA-Public Use
  Company Number: GB-MACLEODS PHARMACEUTICALS US LTD-MAC2014001185

PATIENT

DRUGS (1)
  1. DONEPEZIL 10MG FILM COATED TABLET [Suspect]
     Active Substance: DONEPEZIL
     Indication: DEMENTIA
     Dosage: 10 MG, QD
     Route: 048
     Dates: end: 20140624

REACTIONS (2)
  - Cardiac arrest [Unknown]
  - Conduction disorder [Unknown]
